FAERS Safety Report 21561922 (Version 1)
Quarter: 2022Q4

REPORT INFORMATION
  Report Type: Spontaneous
  Country: GB (occurrence: GB)
  Receive Date: 20221107
  Receipt Date: 20221107
  Transmission Date: 20230112
  Serious: Yes (Life-Threatening, Hospitalization, Other)
  Sender: FDA-Public Use
  Company Number: GB-MHRA-MED-202211021120305030-JTHKS

PATIENT
  Age: 14 Year
  Sex: Male
  Weight: 40 kg

DRUGS (9)
  1. ATRACURIUM BESYLATE [Suspect]
     Active Substance: ATRACURIUM BESYLATE
     Dosage: UNK
     Dates: start: 20221031, end: 20221031
  2. FLUCLOXACILLIN [Suspect]
     Active Substance: FLUCLOXACILLIN
     Dosage: UNK
     Dates: start: 20221031, end: 20221031
  3. OMNIPAQUE [Suspect]
     Active Substance: IOHEXOL
     Dates: start: 20221031
  4. PROPOFOL [Concomitant]
     Active Substance: PROPOFOL
     Dosage: UNK
  5. FENTANYL [Concomitant]
     Active Substance: FENTANYL
     Dosage: UNK
  6. SEVOFLURANE [Concomitant]
     Active Substance: SEVOFLURANE
     Dosage: UNK
  7. ACETAMINOPHEN [Concomitant]
     Active Substance: ACETAMINOPHEN
  8. DEXAMETHASONE [Concomitant]
     Active Substance: DEXAMETHASONE
  9. ONDANSETRON [Concomitant]
     Active Substance: ONDANSETRON
     Dosage: UNK

REACTIONS (4)
  - Hypotension [Recovered/Resolved]
  - Anaphylactic reaction [Unknown]
  - Procedural hypotension [Unknown]
  - Vasodilatation [Unknown]

NARRATIVE: CASE EVENT DATE: 20221031
